FAERS Safety Report 9796752 (Version 2)
Quarter: 2014Q1

REPORT INFORMATION
  Report Type: Spontaneous
  Country: US (occurrence: US)
  Receive Date: 20140103
  Receipt Date: 20140328
  Transmission Date: 20141002
  Serious: Yes (Death, Other)
  Sender: FDA-Public Use
  Company Number: US-FRI-1000052627

PATIENT
  Age: 56 Year
  Sex: Female
  Weight: 105 kg

DRUGS (12)
  1. BYSTOLIC [Suspect]
     Indication: HYPERTENSION
     Dosage: 10 MG
     Route: 048
     Dates: start: 20110402
  2. BYSTOLIC [Suspect]
     Dosage: 20 MG
     Route: 048
  3. PRAVASTATIN [Concomitant]
     Dosage: 10 MG
     Route: 048
  4. NORVASC [Concomitant]
     Dosage: 10 MG
     Route: 048
  5. LISINOPRIL [Concomitant]
     Dosage: 40 MG
     Route: 048
  6. SYMBICORT [Concomitant]
     Dosage: 2 PUFFS 2 TIMES A DAY
     Route: 055
  7. METFORMIN [Concomitant]
     Dosage: 1000 MG
     Route: 048
  8. ATROVENT [Concomitant]
  9. ALBUTEROL SULFATE [Concomitant]
     Dosage: 2.5MG/3 ML, FOUR TIMES A DAY AS NEEDED
  10. LASIX [Concomitant]
     Dosage: 40 MG
     Route: 048
  11. OXYGEN [Concomitant]
     Dosage: 2-3 L/MIN
  12. NASONEX [Concomitant]
     Dosage: 100 MCG

REACTIONS (3)
  - Pneumonia [Fatal]
  - Cardiomegaly [Unknown]
  - Respiratory distress [Fatal]
